FAERS Safety Report 12737093 (Version 4)
Quarter: 2016Q4

REPORT INFORMATION
  Report Type: Report from Study
  Country: KR (occurrence: KR)
  Receive Date: 20160913
  Receipt Date: 20161019
  Transmission Date: 20170207
  Serious: Yes (Death, Other)
  Sender: FDA-Public Use
  Company Number: KR-SYNEX-T201604265

PATIENT
  Age: 7 Day
  Sex: Female
  Weight: 2 kg

DRUGS (7)
  1. VECURONIUM [Concomitant]
     Active Substance: VECURONIUM BROMIDE
     Indication: PRODUCT USED FOR UNKNOWN INDICATION
     Dosage: 1 MCG/KG/HR
     Route: 042
     Dates: start: 201608, end: 201608
  2. DOBUTAMIN [Concomitant]
     Active Substance: DOBUTAMINE HYDROCHLORIDE
     Indication: PRODUCT USED FOR UNKNOWN INDICATION
     Dosage: 4 MG/KG/MIN
     Route: 042
     Dates: start: 20160824, end: 20160831
  3. AMPICILLIN [Concomitant]
     Active Substance: AMPICILLIN
     Indication: PRODUCT USED FOR UNKNOWN INDICATION
     Dosage: 100 MG/KG/DAY FOR 3 DAYS
     Route: 042
     Dates: start: 20160824, end: 20160826
  4. INOMAX [Suspect]
     Active Substance: NITRIC OXIDE
     Indication: CONGENITAL DIAPHRAGMATIC HERNIA
  5. MIDAZOLAM [Concomitant]
     Active Substance: MIDAZOLAM\MIDAZOLAM HYDROCHLORIDE
     Indication: PRODUCT USED FOR UNKNOWN INDICATION
     Dosage: 0.08 MG/KG/H
     Route: 042
     Dates: start: 20160824, end: 201608
  6. INOMAX [Suspect]
     Active Substance: NITRIC OXIDE
     Indication: PULMONARY HYPERTENSION
     Dosage: 20 PPM TO START AND THEN TAPERED
     Dates: start: 20160824, end: 20160830
  7. GENTAMYCIN [Concomitant]
     Active Substance: GENTAMICIN
     Indication: PRODUCT USED FOR UNKNOWN INDICATION
     Dosage: 4 MG/KG/DAY
     Route: 042
     Dates: start: 20160824, end: 20160831

REACTIONS (3)
  - Pulmonary hypertension [Fatal]
  - Off label use [Unknown]
  - Oxygen saturation decreased [Unknown]

NARRATIVE: CASE EVENT DATE: 20160831
